FAERS Safety Report 7604323-4 (Version None)
Quarter: 2011Q3

REPORT INFORMATION
  Report Type: 
  Country: None (occurrence: None)
  Receive Date: 20110712
  Receipt Date: 20110701
  Transmission Date: 20111222
  Serious: Yes (Other)
  Sender: FDA-Public Use
  Company Number: PHHY2011JP55857

PATIENT
  Sex: Female

DRUGS (3)
  1. MORPHINE HCL ELIXIR [Concomitant]
     Indication: BACK PAIN
     Dosage: UNK
     Dates: start: 20100823
  2. ANALGESICS [Concomitant]
  3. ZOMETA [Suspect]
     Indication: BONE LESION
     Dosage: UNK
     Dates: start: 20100830

REACTIONS (5)
  - FEELING ABNORMAL [None]
  - MULTI-ORGAN FAILURE [None]
  - RENAL FAILURE ACUTE [None]
  - DISSEMINATED INTRAVASCULAR COAGULATION [None]
  - OLIGURIA [None]
